FAERS Safety Report 10037891 (Version 1)
Quarter: 2014Q1

REPORT INFORMATION
  Report Type: Spontaneous
  Country: FR (occurrence: FR)
  Receive Date: 20140326
  Receipt Date: 20140326
  Transmission Date: 20141002
  Serious: Yes (Hospitalization, Disabling)
  Sender: FDA-Public Use
  Company Number: FR-SA-2014SA033300

PATIENT
  Age: 96 Year
  Sex: Female

DRUGS (7)
  1. ZOLPIDEM TARTRATE [Suspect]
     Indication: INSOMNIA
     Route: 048
     Dates: start: 20140210, end: 20140302
  2. LAMALINE [Suspect]
     Indication: PAIN IN EXTREMITY
     Dosage: 2 TABLETS 3 TIMES DAILY
     Route: 048
     Dates: start: 20140217, end: 20140302
  3. KARDEGIC [Concomitant]
     Route: 048
  4. SEROPRAM [Concomitant]
     Route: 048
  5. SPECIAFOLDINE [Concomitant]
     Route: 048
  6. TRANSIPEG [Concomitant]
     Route: 048
  7. CALCIUM D3 ^STADA^ [Concomitant]
     Route: 048

REACTIONS (14)
  - Altered state of consciousness [Recovered/Resolved]
  - Extrapyramidal disorder [Recovered/Resolved]
  - Atrial fibrillation [Recovered/Resolved]
  - Faecalith [Recovered/Resolved]
  - Renal failure acute [Recovered/Resolved]
  - Dehydration [Recovered/Resolved]
  - Thinking abnormal [Recovered/Resolved]
  - Pain in extremity [Recovered/Resolved]
  - Abnormal behaviour [Recovered/Resolved]
  - Aphagia [Recovered/Resolved]
  - Confusional state [Recovered/Resolved]
  - Disorientation [Recovered/Resolved]
  - Disturbance in attention [Recovered/Resolved]
  - Constipation [Recovered/Resolved]
